FAERS Safety Report 7122508-0 (Version None)
Quarter: 2010Q4

REPORT INFORMATION
  Report Type: 
  Country: None (occurrence: None)
  Receive Date: 20101122
  Receipt Date: 20101122
  Transmission Date: 20110411
  Serious: Yes (Other)
  Sender: FDA-Public Use
  Company Number: None

PATIENT
  Age: 74 Year
  Sex: Male

DRUGS (8)
  1. FLUOROURACIL [Suspect]
     Indication: COLON CANCER STAGE IV
     Dosage: 1200 MG/M2; ; IV
     Route: 042
  2. OXALIPLATIN [Suspect]
     Indication: COLON CANCER STAGE IV
     Dosage: 85 MG/M2; ; IV
     Route: 042
  3. LEUCOVORIN [Suspect]
     Indication: COLON CANCER STAGE IV
     Dosage: 400 MG/M2; ; IV
     Route: 042
  4. AVASTIN [Suspect]
     Indication: COLON CANCER STAGE IV
     Dosage: 5 MG/KG; ; IV
     Route: 042
  5. OMEPRAZOLE [Concomitant]
  6. NIFEDIPINE [Concomitant]
  7. PRAVASTATIN [Concomitant]
  8. MAGNESIUM SULFATE [Concomitant]

REACTIONS (2)
  - PNEUMONIA [None]
  - PULMONARY EOSINOPHILIA [None]
